FAERS Safety Report 6387380-5 (Version None)
Quarter: 2009Q3

REPORT INFORMATION
  Report Type: 
  Country: None (occurrence: None)
  Receive Date: 20090930
  Receipt Date: 20090914
  Transmission Date: 20100115
  Serious: Yes (Hospitalization)
  Sender: FDA-Public Use
  Company Number: 2008AL010867

PATIENT
  Age: 58 Year
  Sex: Male
  Weight: 88.4514 kg

DRUGS (20)
  1. DIGOXIN [Suspect]
     Dosage: 0.25MG, DAILY, PO
     Route: 048
     Dates: start: 19990101
  2. LISINOPRIL [Concomitant]
  3. LOVASTATIN [Concomitant]
  4. LASIX [Concomitant]
  5. COREG [Concomitant]
  6. COZAAR [Concomitant]
  7. JANTOVEN [Concomitant]
  8. GLIPIZIDE [Concomitant]
  9. SPIRONOLACTONE [Concomitant]
  10. COUMADIN [Concomitant]
  11. ISOSORBIDE [Concomitant]
  12. TERAZOSIN [Concomitant]
  13. ALDACTONE [Concomitant]
  14. FLOMAX [Concomitant]
  15. ZOCOR [Concomitant]
  16. NITROGLYCERIN [Concomitant]
  17. HEPARIN [Concomitant]
  18. ASPIRIN [Concomitant]
  19. CIPRO [Concomitant]
  20. NITROFURANTOIN [Concomitant]

REACTIONS (18)
  - ANXIETY [None]
  - BENIGN PROSTATIC HYPERPLASIA [None]
  - CONGESTIVE CARDIOMYOPATHY [None]
  - DYSLIPIDAEMIA [None]
  - EPIDIDYMITIS [None]
  - HYDROCELE [None]
  - HYPERTENSION [None]
  - MITRAL VALVE INCOMPETENCE [None]
  - MULTIPLE INJURIES [None]
  - MYOCARDIAL INFARCTION [None]
  - ORCHITIS [None]
  - ORGANIC ERECTILE DYSFUNCTION [None]
  - PAIN [None]
  - PARAESTHESIA [None]
  - PROSTATE CANCER [None]
  - PROSTATITIS [None]
  - SURGERY [None]
  - VENTRICULAR TACHYCARDIA [None]
